FAERS Safety Report 9319896 (Version 1)
Quarter: 2013Q2

REPORT INFORMATION
  Report Type: Spontaneous
  Country: GR (occurrence: GR)
  Receive Date: 20130530
  Receipt Date: 20130530
  Transmission Date: 20140414
  Serious: Yes (Hospitalization)
  Sender: FDA-Public Use
  Company Number: GR-ASTRAZENECA-2013SE36044

PATIENT
  Age: 70 Year
  Sex: Male
  Weight: 85 kg

DRUGS (6)
  1. MERONEM [Suspect]
     Indication: INFECTION
     Route: 042
     Dates: start: 20130416, end: 20130420
  2. ANGORON [Concomitant]
     Indication: ATRIAL FIBRILLATION
     Route: 048
     Dates: start: 20130417, end: 20130419
  3. LORDIN [Concomitant]
     Indication: PROPHYLAXIS AGAINST GASTROINTESTINAL ULCER
     Route: 042
     Dates: start: 20130414
  4. PREZOLON [Concomitant]
     Indication: RHEUMATOID ARTHRITIS
     Route: 042
     Dates: start: 20130414
  5. BACTRIMEL [Concomitant]
     Indication: PNEUMOCYSTIS JIROVECII PNEUMONIA
     Dosage: 800MG+160MG, 1 DF EVERY DAY
     Route: 048
     Dates: start: 20130414
  6. AMINOVEN [Concomitant]
     Indication: PARENTERAL NUTRITION
     Route: 042
     Dates: start: 20130418

REACTIONS (2)
  - Epilepsy [Recovering/Resolving]
  - Atrial fibrillation [Unknown]
